FAERS Safety Report 9325826 (Version 1)
Quarter: 2013Q2

REPORT INFORMATION
  Report Type: Report from Study
  Country: RU (occurrence: RU)
  Receive Date: 20130604
  Receipt Date: 20130604
  Transmission Date: 20140414
  Serious: Yes (Hospitalization)
  Sender: FDA-Public Use
  Company Number: RU-MPIJNJ-2013-04004

PATIENT
  Sex: 0

DRUGS (7)
  1. VELCADE [Suspect]
     Indication: PLASMA CELL MYELOMA
     Dosage: UNK
     Route: 065
     Dates: end: 20120606
  2. VELCADE [Suspect]
     Dosage: UNK
     Route: 065
     Dates: start: 20120816, end: 20120828
  3. CYCLOPHOSPHAMIDE [Suspect]
     Indication: PLASMA CELL MYELOMA
     Dosage: UNK
     Route: 065
     Dates: end: 20120606
  4. CYCLOPHOSPHAMIDE [Suspect]
     Dosage: UNK
     Route: 065
     Dates: start: 20120816, end: 20120828
  5. ALKERAN [Suspect]
     Indication: PLASMA CELL MYELOMA
     Dosage: UNK
     Route: 065
  6. DEXAMETHASONE [Concomitant]
     Dosage: UNK
     Dates: end: 20120606
  7. DEXAMETHASONE [Concomitant]
     Dosage: UNK
     Dates: start: 20120816, end: 20120828

REACTIONS (3)
  - Haemorrhagic disorder [Recovered/Resolved]
  - Thrombocytopenia [Recovered/Resolved]
  - Chronic obstructive pulmonary disease [Recovered/Resolved]
